FAERS Safety Report 7331829-8 (Version None)
Quarter: 2011Q1

REPORT INFORMATION
  Report Type: 
  Country: None (occurrence: None)
  Receive Date: 20110304
  Receipt Date: 20110222
  Transmission Date: 20110831
  Serious: Yes (Hospitalization)
  Sender: FDA-Public Use
  Company Number: DE-CELGENEUS-062-C5013-07121240

PATIENT
  Sex: Female
  Weight: 56 kg

DRUGS (6)
  1. CC-5013 [Suspect]
     Dosage: 10 MILLIGRAM
     Route: 048
     Dates: start: 20071222
  2. MARCUMAR [Concomitant]
     Indication: ANTICOAGULANT THERAPY
     Route: 048
  3. CC-5013 [Suspect]
     Indication: MULTIPLE MYELOMA
     Dosage: 10 MILLIGRAM
     Route: 048
     Dates: start: 20070609, end: 20071212
  4. PREDNISONE [Suspect]
     Indication: MULTIPLE MYELOMA
     Dosage: 116 MILLIGRAM
     Route: 048
     Dates: start: 20070609
  5. MELPHALAN [Suspect]
     Indication: MULTIPLE MYELOMA
     Dosage: 10 MILLIGRAM
     Route: 048
     Dates: start: 20070609
  6. BIOSORB [Concomitant]
     Route: 048

REACTIONS (2)
  - FEBRILE NEUTROPENIA [None]
  - GASTROENTERITIS NOROVIRUS [None]
